FAERS Safety Report 20642162 (Version 2)
Quarter: 2022Q3

REPORT INFORMATION
  Report Type: Spontaneous
  Country: US (occurrence: US)
  Receive Date: 20220328
  Receipt Date: 20220903
  Transmission Date: 20221026
  Serious: Yes (Life-Threatening, Hospitalization, Other)
  Sender: FDA-Public Use
  Company Number: US-MLMSERVICE-20220316-3434625-1

PATIENT
  Age: 65 Year
  Sex: Female

DRUGS (8)
  1. DAPTOMYCIN [Suspect]
     Active Substance: DAPTOMYCIN
     Indication: Abdominal abscess
     Dosage: DOSE-OPTIMIZED DAPTOMYCIN (9.6 MG/KG/DAY) FOR 2 WEEKS TRANSITIONING TO DAPTOMYCIN
  2. LINEZOLID [Suspect]
     Active Substance: LINEZOLID
     Indication: Abdominal abscess
  3. FLUCONAZOLE [Concomitant]
     Active Substance: FLUCONAZOLE
     Indication: Abdominal abscess
  4. MEROPENEM [Concomitant]
     Active Substance: MEROPENEM
     Indication: Abdominal abscess
  5. MICAFUNGIN [Concomitant]
     Active Substance: MICAFUNGIN
     Indication: Abdominal abscess
  6. MEROPENEM [Concomitant]
     Active Substance: MEROPENEM
     Indication: Enterococcal infection
  7. DAPTOMYCIN [Suspect]
     Active Substance: DAPTOMYCIN
     Indication: Enterococcal infection
  8. LINEZOLID [Suspect]
     Active Substance: LINEZOLID
     Indication: Enterococcal infection

REACTIONS (5)
  - Device related infection [Recovered/Resolved]
  - Pathogen resistance [Unknown]
  - Abdominal pain [Unknown]
  - Multiple-drug resistance [Unknown]
  - Enterococcal bacteraemia [Recovered/Resolved]
